FAERS Safety Report 9408286 (Version 1)
Quarter: 2013Q3

REPORT INFORMATION
  Report Type: Spontaneous
  Country: GB (occurrence: GB)
  Receive Date: 20130718
  Receipt Date: 20130718
  Transmission Date: 20140515
  Serious: Yes (Death, Other)
  Sender: FDA-Public Use
  Company Number: PHHY2013GB076367

PATIENT
  Age: 18 Year
  Sex: Female

DRUGS (3)
  1. DIAZEPAM [Suspect]
     Dates: start: 20120820, end: 20120820
  2. SUBUTEX [Suspect]
     Dates: end: 20120820
  3. CANNABIS [Suspect]
     Dates: end: 20120820

REACTIONS (4)
  - Death [Fatal]
  - Heart rate irregular [Recovered/Resolved]
  - Drug abuse [Recovered/Resolved]
  - Wrong technique in drug usage process [Recovered/Resolved]
